FAERS Safety Report 12943169 (Version 1)
Quarter: 2016Q4

REPORT INFORMATION
  Report Type: Spontaneous
  Country: US (occurrence: US)
  Receive Date: 20161115
  Receipt Date: 20161115
  Transmission Date: 20170207
  Serious: No
  Sender: FDA-Public Use
  Company Number: US-NOVOPROD-472102

PATIENT
  Age: 61 Year
  Sex: Female

DRUGS (2)
  1. VAGIFEM LD [Suspect]
     Active Substance: ESTRADIOL
     Indication: POSTMENOPAUSE
     Dosage: UNK
     Route: 067
     Dates: start: 201506, end: 2015
  2. VAGIFEM LD [Suspect]
     Active Substance: ESTRADIOL
     Dosage: UNK
     Route: 067
     Dates: start: 201511

REACTIONS (3)
  - Cystitis [Recovered/Resolved]
  - Cystitis [Recovered/Resolved]
  - Vaginal laceration [Recovered/Resolved]

NARRATIVE: CASE EVENT DATE: 201506
